FAERS Safety Report 23195647 (Version 3)
Quarter: 2023Q4

REPORT INFORMATION
  Report Type: Report from Study
  Country: US (occurrence: US)
  Receive Date: 20231117
  Receipt Date: 20231225
  Transmission Date: 20240110
  Serious: No
  Sender: FDA-Public Use
  Company Number: US-002147023-NVSC2023US244490

PATIENT
  Sex: Female

DRUGS (1)
  1. KISQALI [Suspect]
     Active Substance: RIBOCICLIB
     Indication: Product used for unknown indication
     Dosage: UNK
     Route: 065

REACTIONS (5)
  - Product use issue [Unknown]
  - Alopecia [Unknown]
  - Vision blurred [Unknown]
  - Diarrhoea [Unknown]
  - Constipation [Unknown]
